FAERS Safety Report 15015418 (Version 2)
Quarter: 2018Q3

REPORT INFORMATION
  Report Type: Spontaneous
  Country: JP (occurrence: JP)
  Receive Date: 20180615
  Receipt Date: 20180820
  Transmission Date: 20181010
  Serious: Yes (Other)
  Sender: FDA-Public Use
  Company Number: JP-GLAXOSMITHKLINE-JP2018JPN103998

PATIENT
  Sex: Male

DRUGS (2)
  1. RELVAR ELLIPTA [Suspect]
     Active Substance: FLUTICASONE FUROATE\VILANTEROL TRIFENATATE
     Indication: ASTHMA
     Dosage: 200 ?G, 1D
     Route: 055
     Dates: start: 20180410
  2. INCRUSE ELLIPTA [Suspect]
     Active Substance: UMECLIDINIUM BROMIDE
     Indication: CHRONIC OBSTRUCTIVE PULMONARY DISEASE
     Dosage: UNK
     Route: 055
     Dates: start: 20180507

REACTIONS (13)
  - Blood urine present [Unknown]
  - Throat irritation [Recovering/Resolving]
  - Chest discomfort [Unknown]
  - Dysphonia [Not Recovered/Not Resolved]
  - Protein urine present [Unknown]
  - Treatment noncompliance [Unknown]
  - Arrhythmia [Unknown]
  - Peripheral coldness [Unknown]
  - Tinnitus [Unknown]
  - Decreased immune responsiveness [Unknown]
  - Sleep disorder due to general medical condition, insomnia type [Unknown]
  - Cough [Recovering/Resolving]
  - Chest pain [Not Recovered/Not Resolved]
